FAERS Safety Report 13100937 (Version 1)
Quarter: 2017Q1

REPORT INFORMATION
  Report Type: Spontaneous
  Country: US (occurrence: US)
  Receive Date: 20170110
  Receipt Date: 20170110
  Transmission Date: 20170428
  Serious: Yes (Hospitalization, Other)
  Sender: FDA-Public Use
  Company Number: US-TEVA-728325USA

PATIENT
  Age: 37 Year
  Sex: Male
  Weight: 83.99 kg

DRUGS (15)
  1. BACLOFEN. [Suspect]
     Active Substance: BACLOFEN
     Indication: MUSCLE SPASTICITY
     Route: 048
  2. DULCOLAX NOS [Concomitant]
     Active Substance: BISACODYL OR DOCUSATE SODIUM
  3. COLACE [Concomitant]
     Active Substance: DOCUSATE SODIUM
  4. IMURAN [Concomitant]
     Active Substance: AZATHIOPRINE
  5. VISTARIL [Concomitant]
     Active Substance: HYDROXYZINE PAMOATE
  6. CLARITIN [Concomitant]
     Active Substance: LORATADINE
  7. LOTRIMIN [Concomitant]
     Active Substance: CLOTRIMAZOLE
  8. VITAMIN D3 [Concomitant]
     Active Substance: CHOLECALCIFEROL
  9. SYNTHROID [Concomitant]
     Active Substance: LEVOTHYROXINE SODIUM
  10. LIORESAL [Suspect]
     Active Substance: BACLOFEN
     Indication: MUSCLE SPASTICITY
     Dosage: 680 MICROGRAM DAILY; 2000MICROGRAM/MILLILITER
     Route: 037
     Dates: start: 2002
  11. SENNA [Concomitant]
     Active Substance: SENNA LEAF\SENNOSIDES\SENNOSIDES A AND B
  12. MIRALAX [Concomitant]
     Active Substance: POLYETHYLENE GLYCOL 3350
  13. GEODON [Concomitant]
     Active Substance: ZIPRASIDONE HYDROCHLORIDE\ZIPRASIDONE MESYLATE
  14. DEPAKOTE [Concomitant]
     Active Substance: DIVALPROEX SODIUM
  15. PRILOSEC [Concomitant]
     Active Substance: OMEPRAZOLE MAGNESIUM

REACTIONS (6)
  - Oxygen saturation decreased [Unknown]
  - Bradycardia [Unknown]
  - Seizure like phenomena [Unknown]
  - Hypertension [Unknown]
  - Implant site erosion [Recovered/Resolved]
  - Pocket erosion [Recovered/Resolved]

NARRATIVE: CASE EVENT DATE: 2016
